FAERS Safety Report 17477492 (Version 3)
Quarter: 2021Q3

REPORT INFORMATION
  Report Type: Spontaneous
  Country: JP (occurrence: JP)
  Receive Date: 20200229
  Receipt Date: 20210910
  Transmission Date: 20211014
  Serious: Yes (Hospitalization, Other)
  Sender: FDA-Public Use
  Company Number: JP-AMGEN-JPNSP2020034533

PATIENT
  Age: 6 Decade
  Sex: Female

DRUGS (3)
  1. CALCIUM [Concomitant]
     Active Substance: CALCIUM
     Dosage: UNK
     Route: 065
  2. RANMARK [Suspect]
     Active Substance: DENOSUMAB
     Indication: METASTASES TO SPINE
     Dosage: UNK, Q4WK
     Route: 065
     Dates: start: 2013, end: 202010
  3. HORMONES [Concomitant]
     Active Substance: UNSPECIFIED INGREDIENT
     Dosage: UNK
     Route: 065

REACTIONS (10)
  - Cellulitis [Recovered/Resolved]
  - Toothache [Not Recovered/Not Resolved]
  - Calcinosis [Recovered/Resolved]
  - Nasopharyngitis [Not Recovered/Not Resolved]
  - Vertebral osteophyte [Not Recovered/Not Resolved]
  - Arthralgia [Recovered/Resolved]
  - Femur fracture [Recovered/Resolved]
  - Dermatitis contact [Unknown]
  - Calcinosis [Not Recovered/Not Resolved]
  - Oedema peripheral [Not Recovered/Not Resolved]

NARRATIVE: CASE EVENT DATE: 201812
